FAERS Safety Report 15886852 (Version 1)
Quarter: 2019Q1

REPORT INFORMATION
  Report Type: Spontaneous
  Country: FR (occurrence: FR)
  Receive Date: 20190129
  Receipt Date: 20190129
  Transmission Date: 20190417
  Serious: Yes (Other)
  Sender: FDA-Public Use
  Company Number: FR-PROVELL PHARMACEUTICALS-2061906

PATIENT
  Age: 53 Year
  Sex: Female
  Weight: 72 kg

DRUGS (1)
  1. EUTHYROX [Suspect]
     Active Substance: LEVOTHYROXINE SODIUM
     Indication: THYROIDITIS
     Route: 048
     Dates: start: 20170401, end: 20171231

REACTIONS (13)
  - Pain [Recovering/Resolving]
  - Migraine [Recovering/Resolving]
  - Disturbance in attention [Not Recovered/Not Resolved]
  - Asthenia [Not Recovered/Not Resolved]
  - Vertigo [Recovering/Resolving]
  - Suicidal ideation [Recovering/Resolving]
  - Arthralgia [Recovering/Resolving]
  - Memory impairment [Not Recovered/Not Resolved]
  - Depression [Recovering/Resolving]
  - Skin wrinkling [Recovering/Resolving]
  - Insomnia [Recovering/Resolving]
  - Disturbance in attention [Recovering/Resolving]
  - Alopecia [Not Recovered/Not Resolved]

NARRATIVE: CASE EVENT DATE: 201806
